FAERS Safety Report 4489059-3 (Version None)
Quarter: 2004Q4

REPORT INFORMATION
  Report Type: 
  Country: None (occurrence: None)
  Receive Date: 20041029
  Receipt Date: 20030605
  Transmission Date: 20050328
  Serious: Yes (Hospitalization, Disabling)
  Sender: FDA-Public Use
  Company Number: US-MERCK-0306USA00783

PATIENT
  Age: 59 Year
  Sex: Male

DRUGS (7)
  1. VIOXX [Suspect]
     Route: 048
     Dates: end: 20001222
  2. VIOXX [Suspect]
     Route: 048
     Dates: start: 20010105, end: 20011024
  3. ASPIRIN [Concomitant]
     Route: 048
  4. SYNTHROID [Concomitant]
     Route: 048
  5. NORVASC [Concomitant]
     Route: 065
  6. ALBUTEROL [Concomitant]
     Route: 055
  7. TOPROL-XL [Concomitant]
     Route: 065

REACTIONS (54)
  - ADVERSE EVENT [None]
  - ANXIETY [None]
  - ARTHRALGIA [None]
  - ATRIAL FIBRILLATION [None]
  - BENIGN PROSTATIC HYPERPLASIA [None]
  - BRONCHITIS [None]
  - BUNDLE BRANCH BLOCK RIGHT [None]
  - CARDIAC FAILURE CONGESTIVE [None]
  - CARDIOMYOPATHY [None]
  - CELLULITIS [None]
  - CONSTIPATION [None]
  - COUGH [None]
  - DEPRESSION [None]
  - DIARRHOEA [None]
  - DILATATION ATRIAL [None]
  - DILATATION VENTRICULAR [None]
  - DRUG INEFFECTIVE [None]
  - DYSPNOEA [None]
  - FOOD POISONING [None]
  - HERPES SIMPLEX [None]
  - HYPERTENSION [None]
  - HYPOTHYROIDISM [None]
  - INFLUENZA [None]
  - INTERNATIONAL NORMALISED RATIO INCREASED [None]
  - INTERVERTEBRAL DISC PROTRUSION [None]
  - MITRAL VALVE INCOMPETENCE [None]
  - MOOD ALTERED [None]
  - MUSCLE CRAMP [None]
  - MYALGIA [None]
  - NOCTURIA [None]
  - NODULE [None]
  - OSTEOARTHRITIS [None]
  - PANIC ATTACK [None]
  - PHARYNGOLARYNGEAL PAIN [None]
  - PNEUMONIA [None]
  - POSTNASAL DRIP [None]
  - PROSTATIC SPECIFIC ANTIGEN INCREASED [None]
  - PROTEINURIA [None]
  - PULMONARY CONGESTION [None]
  - PULMONARY EOSINOPHILIA [None]
  - PULMONARY HYPERTENSION [None]
  - PYREXIA [None]
  - RASH [None]
  - ROAD TRAFFIC ACCIDENT [None]
  - SPINAL COLUMN STENOSIS [None]
  - SPINAL CORD COMPRESSION [None]
  - SPINAL DISORDER [None]
  - SPONDYLOSIS [None]
  - TEMPOROMANDIBULAR JOINT SYNDROME [None]
  - TINNITUS [None]
  - TRICUSPID VALVE INCOMPETENCE [None]
  - UPPER RESPIRATORY TRACT INFECTION [None]
  - VENTRICULAR HYPERTROPHY [None]
  - VIRAL INFECTION [None]
